FAERS Safety Report 5602400-0 (Version None)
Quarter: 2008Q1

REPORT INFORMATION
  Report Type: 
  Country: None (occurrence: None)
  Receive Date: 20080125
  Receipt Date: 20080116
  Transmission Date: 20080703
  Serious: Yes (Other)
  Sender: FDA-Public Use
  Company Number: FR-ASTRAZENECA-2008CG00110

PATIENT
  Age: 30979 Day
  Sex: Male

DRUGS (12)
  1. ZESTRIL [Suspect]
     Indication: HYPERTENSION
     Route: 048
     Dates: start: 20070828, end: 20070828
  2. ZESTRIL [Suspect]
     Route: 048
     Dates: start: 20070926
  3. INEXIUM [Concomitant]
     Route: 048
  4. TADENAN [Concomitant]
     Dosage: 50 MG DAILY FIVE DAYS A WEEK
     Route: 048
  5. ICAZ [Concomitant]
     Indication: HYPERTENSION
     Route: 048
     Dates: end: 20070828
  6. COUMADIN [Concomitant]
     Indication: CARDIOMYOPATHY
     Route: 048
     Dates: end: 20070901
  7. COMBIVENT [Concomitant]
     Indication: ASTHMA
     Route: 055
     Dates: end: 20070829
  8. BECLOJET [Concomitant]
     Indication: ASTHMA
     Route: 055
     Dates: end: 20070829
  9. LASIX [Concomitant]
  10. GAVISCON [Concomitant]
     Route: 048
  11. TRANSULOSE [Concomitant]
     Route: 048
  12. IMOVANE [Concomitant]

REACTIONS (1)
  - SHOCK [None]
